FAERS Safety Report 12109170 (Version 1)
Quarter: 2016Q1

REPORT INFORMATION
  Report Type: Spontaneous
  Country: US (occurrence: US)
  Receive Date: 20160224
  Receipt Date: 20160224
  Transmission Date: 20160526
  Serious: Yes (Hospitalization)
  Sender: FDA-Public Use
  Company Number: US-SA-2016SA037193

PATIENT
  Age: 44 Year
  Sex: Male
  Weight: 68.94 kg

DRUGS (17)
  1. PREDNISONE. [Concomitant]
     Active Substance: PREDNISONE
     Route: 048
     Dates: start: 20150227
  2. ZOLOFT [Concomitant]
     Active Substance: SERTRALINE HYDROCHLORIDE
     Dosage: AS DIRECTED
     Route: 048
     Dates: start: 20100303
  3. CALCITRIOL. [Concomitant]
     Active Substance: CALCITRIOL
     Dosage: AS DIRECTED
     Route: 030
     Dates: start: 20100303
  4. NORMAL SALINE [Concomitant]
     Active Substance: SODIUM CHLORIDE
     Indication: FLUSHING
     Dosage: AS DIRECTED
     Route: 042
     Dates: start: 20160129
  5. NEURONTIN [Concomitant]
     Active Substance: GABAPENTIN
     Route: 048
     Dates: start: 20150227
  6. SENSIPAR [Concomitant]
     Active Substance: CINACALCET HYDROCHLORIDE
     Route: 048
     Dates: start: 20150227
  7. PAXIL [Concomitant]
     Active Substance: PAROXETINE HYDROCHLORIDE
     Dosage: AS DIRECTED
     Route: 048
     Dates: start: 20150227
  8. EPOGEN [Concomitant]
     Active Substance: ERYTHROPOIETIN
     Dosage: AS DIRECTED
     Route: 058
     Dates: start: 20100303
  9. COLACE [Concomitant]
     Active Substance: DOCUSATE SODIUM
     Dosage: AS DIRECTED
     Route: 048
     Dates: start: 20100303
  10. EPIPEN [Concomitant]
     Active Substance: EPINEPHRINE
     Indication: ANAPHYLACTIC REACTION
     Route: 030
     Dates: start: 20160129
  11. SOLU-CORTEF [Concomitant]
     Active Substance: HYDROCORTISONE SODIUM SUCCINATE
     Indication: ANAPHYLACTIC REACTION
     Route: 042
     Dates: start: 20160129
  12. DIALYVITE [Concomitant]
     Active Substance: ASCORBIC ACID\BIOTIN\CALCIUM PANTOTHENATE\COBALAMIN\FOLIC ACID\NIACINAMIDE\PYRIDOXINE HYDROCHLORIDE\RIBOFLAVIN\THIAMINE MONONITRATE
     Dosage: AS DIRECTED
     Route: 048
     Dates: start: 20100303
  13. FABRAZYME [Suspect]
     Active Substance: AGALSIDASE BETA
     Indication: FABRY^S DISEASE
     Route: 042
  14. ASPIRIN. [Concomitant]
     Active Substance: ASPIRIN
     Route: 048
     Dates: start: 20150227
  15. WARFARIN [Concomitant]
     Active Substance: WARFARIN
     Dosage: AS DIRECTED
     Route: 048
     Dates: start: 20150227
  16. RENAGEL [Concomitant]
     Active Substance: SEVELAMER HYDROCHLORIDE
     Dosage: AFTER MEALS
     Route: 048
     Dates: start: 20100303
  17. DIPHENHYDRAMINE. [Concomitant]
     Active Substance: DIPHENHYDRAMINE
     Indication: ANAPHYLACTIC REACTION
     Dosage: DOSE:50 MILLIGRAM(S)/MILLILITRE
     Route: 042
     Dates: start: 20160129

REACTIONS (1)
  - Rotator cuff repair [Unknown]

NARRATIVE: CASE EVENT DATE: 20160127
